FAERS Safety Report 5802971-5 (Version None)
Quarter: 2008Q3

REPORT INFORMATION
  Report Type: 
  Country: None (occurrence: None)
  Receive Date: 20080703
  Receipt Date: 20080620
  Transmission Date: 20090109
  Serious: Yes (Hospitalization, Other)
  Sender: FDA-Public Use
  Company Number: 2008S1011274

PATIENT
  Age: 27 Year
  Sex: Female

DRUGS (1)
  1. WARFARIN SODIUM [Suspect]
     Indication: HEART VALVE REPLACEMENT
     Dosage: 6 MG;TABLET;DAILY

REACTIONS (5)
  - HAEMOGLOBIN DECREASED [None]
  - HAEMORRHAGIC OVARIAN CYST [None]
  - INTERNATIONAL NORMALISED RATIO INCREASED [None]
  - PERITONEAL HAEMORRHAGE [None]
  - WHITE BLOOD CELL COUNT INCREASED [None]
